FAERS Safety Report 25495019 (Version 1)
Quarter: 2025Q2

REPORT INFORMATION
  Report Type: Report from Study
  Country: ES (occurrence: ES)
  Receive Date: 20250630
  Receipt Date: 20250630
  Transmission Date: 20250716
  Serious: Yes (Death)
  Sender: PFIZER
  Company Number: ES-PFIZER INC-PV202500076297

PATIENT

DRUGS (1)
  1. TOFACITINIB CITRATE [Suspect]
     Active Substance: TOFACITINIB CITRATE
     Indication: Chronic inflammatory response syndrome

REACTIONS (1)
  - Death [Fatal]
